FAERS Safety Report 14031490 (Version 2)
Quarter: 2019Q3

REPORT INFORMATION
  Report Type: Spontaneous
  Country: US (occurrence: US)
  Receive Date: 20171002
  Receipt Date: 20190722
  Transmission Date: 20191004
  Serious: No
  Sender: FDA-Public Use
  Company Number: US-009507513-1709USA014587

PATIENT
  Age: 5 Year
  Sex: Male
  Weight: 23.2 kg

DRUGS (2)
  1. TEMODAR [Suspect]
     Active Substance: TEMOZOLOMIDE
     Indication: GLIOBLASTOMA
     Dosage: UNK, QD
     Route: 048
  2. TEMODAR [Suspect]
     Active Substance: TEMOZOLOMIDE
     Dosage: UNK, CYCLICAL
     Route: 048

REACTIONS (1)
  - Drug ineffective [Unknown]
